FAERS Safety Report 8948444 (Version 1)
Quarter: 2012Q4

REPORT INFORMATION
  Report Type: Spontaneous
  Country: GB (occurrence: None)
  Receive Date: 20121123
  Receipt Date: 20121123
  Transmission Date: 20130627
  Serious: Yes (Hospitalization, Disabling, Other)
  Sender: FDA-Public Use
  Company Number: AUR-APL-2012-04925

PATIENT
  Age: 52 Year
  Sex: Male
  Weight: 86.17 kg

DRUGS (4)
  1. SIMVASTATIN (SIMVASTATIN) [Suspect]
     Indication: HIGH CHOLESTEROL
     Route: 048
     Dates: start: 20120428, end: 20121105
  2. EPILIM CHRONO (VALPROATE SODIUM) [Concomitant]
  3. LAMOTRIGINE (LAMOTRIGINE) [Concomitant]
  4. METFORMIN (METFORMIN) [Concomitant]

REACTIONS (1)
  - Muscle atrophy [None]
